FAERS Safety Report 9002158 (Version 1)
Quarter: 2013Q1

REPORT INFORMATION
  Report Type: Spontaneous
  Country: US (occurrence: None)
  Receive Date: 20130103
  Receipt Date: 20130103
  Transmission Date: 20140127
  Serious: Yes (Other)
  Sender: FDA-Public Use
  Company Number: None

PATIENT
  Age: 54 Year
  Sex: Male
  Weight: 97.3 kg

DRUGS (1)
  1. VENLAFAXINE [Suspect]
     Indication: DEPRESSION
     Dosage: 75 MG EVERY DAY PO
     Route: 048
     Dates: start: 20031107, end: 20121228

REACTIONS (2)
  - Treatment failure [None]
  - Sexual dysfunction [None]
